FAERS Safety Report 22186949 (Version 2)
Quarter: 2023Q2

REPORT INFORMATION
  Report Type: Report from Study
  Country: US (occurrence: US)
  Receive Date: 20230407
  Receipt Date: 20230419
  Transmission Date: 20230722
  Serious: Yes (Other)
  Sender: FDA-Public Use
  Company Number: US-AMGEN-USASP2023056762

PATIENT
  Age: 64 Year
  Sex: Male

DRUGS (6)
  1. REPATHA [Suspect]
     Active Substance: EVOLOCUMAB
     Indication: Blood cholesterol increased
     Dosage: 140 MILLIGRAM, Q2WK
     Route: 058
     Dates: start: 20230325
  2. REPATHA [Suspect]
     Active Substance: EVOLOCUMAB
     Indication: Cardiovascular disorder
  3. CARVEDILOL [Concomitant]
     Active Substance: CARVEDILOL
     Dosage: TWICE A DAY, ONCE IN THE MORNING AND ONCE AT NIGHT.
  4. NIFEDIPINE [Concomitant]
     Active Substance: NIFEDIPINE
     Dosage: 60 MILLIGRAM, QD
  5. NITROGLYCERIN [Concomitant]
     Active Substance: NITROGLYCERIN
  6. IRBESARTAN [Concomitant]
     Active Substance: IRBESARTAN
     Dosage: 300 MILLIGRAM, QD, 150 IN THE MORNING AND 150 IN THE EVENING

REACTIONS (7)
  - Blood pressure decreased [Recovered/Resolved]
  - Muscular weakness [Unknown]
  - Dizziness [Recovered/Resolved]
  - Sleep disorder due to general medical condition, insomnia type [Unknown]
  - Flushing [Unknown]
  - Fatigue [Not Recovered/Not Resolved]
  - Heart rate decreased [Recovered/Resolved]

NARRATIVE: CASE EVENT DATE: 20230329
